FAERS Safety Report 16713789 (Version 1)
Quarter: 2019Q3

REPORT INFORMATION
  Report Type: Report from Study
  Country: IE (occurrence: IE)
  Receive Date: 20190819
  Receipt Date: 20190819
  Transmission Date: 20191004
  Serious: Yes (Other)
  Sender: FDA-Public Use
  Company Number: IE-TEVA-2019-IE-1092133

PATIENT
  Age: 49 Year
  Sex: Female

DRUGS (1)
  1. COPAXONE [Suspect]
     Active Substance: GLATIRAMER ACETATE
     Indication: MULTIPLE SCLEROSIS
     Dosage: PRE-FILLED SYRINGE
     Route: 058
     Dates: start: 20150420

REACTIONS (8)
  - Cardiac discomfort [Recovered/Resolved]
  - Anticipatory anxiety [Not Recovered/Not Resolved]
  - Product contamination with body fluid [Recovered/Resolved]
  - Chest discomfort [Recovered/Resolved]
  - Skin discolouration [Recovered/Resolved]
  - Heart rate increased [Recovered/Resolved]
  - Panic attack [Recovered/Resolved]
  - Immediate post-injection reaction [Recovered/Resolved]

NARRATIVE: CASE EVENT DATE: 20190805
